FAERS Safety Report 9281123 (Version 1)
Quarter: 2013Q2

REPORT INFORMATION
  Report Type: Spontaneous
  Country: US (occurrence: None)
  Receive Date: 20130508
  Receipt Date: 20130508
  Transmission Date: 20140414
  Serious: Yes (Hospitalization)
  Sender: FDA-Public Use
  Company Number: None

PATIENT
  Age: 67 Year
  Sex: Male
  Weight: 84.7 kg

DRUGS (1)
  1. BORTEZOMIB [Suspect]
     Dosage: SQ
     Route: 058
     Dates: start: 20121026, end: 20121102

REACTIONS (1)
  - Constipation [None]
